FAERS Safety Report 18789574 (Version 1)
Quarter: 2021Q1

REPORT INFORMATION
  Report Type: Spontaneous
  Country: FI (occurrence: FI)
  Receive Date: 20210126
  Receipt Date: 20210126
  Transmission Date: 20210419
  Serious: Yes (Other)
  Sender: FDA-Public Use
  Company Number: FI-009507513-2101FIN010825

PATIENT
  Sex: Female

DRUGS (1)
  1. NUVARING [Suspect]
     Active Substance: ETHINYL ESTRADIOL\ETONOGESTREL
     Dosage: FORMULATION: VAGINAL DELIVERY SYSTEM

REACTIONS (2)
  - Pulmonary embolism [Not Recovered/Not Resolved]
  - Impaired work ability [Not Recovered/Not Resolved]
